FAERS Safety Report 9898937 (Version 3)
Quarter: 2014Q2

REPORT INFORMATION
  Report Type: Spontaneous
  Country: US (occurrence: US)
  Receive Date: 20140214
  Receipt Date: 20140508
  Transmission Date: 20141212
  Serious: Yes (Hospitalization)
  Sender: FDA-Public Use
  Company Number: US-GLAXOSMITHKLINE-A1035982A

PATIENT
  Age: 53 Year
  Sex: Male

DRUGS (1)
  1. AVANDIA [Suspect]
     Indication: DIABETES MELLITUS
     Dosage: 8MG PER DAY
     Route: 048
     Dates: start: 20060328, end: 20100824

REACTIONS (5)
  - Myocardial infarction [Unknown]
  - Coronary arterial stent insertion [Unknown]
  - Ischaemic cardiomyopathy [Unknown]
  - Cardiovascular disorder [Unknown]
  - Cardiac disorder [Unknown]
